FAERS Safety Report 16679084 (Version 1)
Quarter: 2019Q3

REPORT INFORMATION
  Report Type: Other
  Country: None (occurrence: US)
  Receive Date: 20190807
  Receipt Date: 20190807
  Transmission Date: 20191004
  Serious: Yes (Other)
  Sender: FDA-Public Use
  Company Number: US-MEDAC PHARMA, INC.-2072863

PATIENT
  Age: 79 Year
  Sex: Female

DRUGS (4)
  1. METHOTREXATE. [Suspect]
     Active Substance: METHOTREXATE
     Indication: RHEUMATOID ARTHRITIS
  2. PREDNISONE. [Concomitant]
     Active Substance: PREDNISONE
  3. PREDNISOLONE. [Concomitant]
     Active Substance: PREDNISOLONE
  4. HYDROXYCHLOROQUINE SULFATE. [Concomitant]
     Active Substance: HYDROXYCHLOROQUINE SULFATE

REACTIONS (7)
  - Pulmonary hypertension [Unknown]
  - Toxicity to various agents [Unknown]
  - Pneumothorax [Recovering/Resolving]
  - Pleurisy [Unknown]
  - Bronchopleural fistula [Recovering/Resolving]
  - Fibrosis [Unknown]
  - Subcutaneous emphysema [Unknown]
